FAERS Safety Report 8904559 (Version 1)
Quarter: 2012Q4

REPORT INFORMATION
  Report Type: 
  Country: GB (occurrence: GB)
  Receive Date: 20121113
  Receipt Date: 20121113
  Transmission Date: 20130627
  Serious: No
  Sender: FDA-Public Use
  Company Number: GB-ELI_LILLY_AND_COMPANY-GB201211000950

PATIENT
  Sex: Female

DRUGS (2)
  1. CYMBALTA [Suspect]
     Dosage: 100 mg, bid
  2. LAMOTRIGINE [Concomitant]
     Dosage: UNK

REACTIONS (3)
  - Haemoglobin increased [Unknown]
  - Gamma-glutamyltransferase increased [Unknown]
  - Prescribed overdose [Unknown]
